FAERS Safety Report 5191439-8 (Version None)
Quarter: 2006Q4

REPORT INFORMATION
  Report Type: 
  Country: None (occurrence: None)
  Receive Date: 20061226
  Receipt Date: 20061215
  Transmission Date: 20070319
  Serious: Yes (Hospitalization)
  Sender: FDA-Public Use
  Company Number: US-AMGEN-US202677

PATIENT
  Sex: Male

DRUGS (6)
  1. PANITUMUMAB [Suspect]
     Indication: COLORECTAL CANCER
     Route: 042
     Dates: start: 20060404
  2. AVASTIN [Suspect]
     Route: 042
  3. FLUOROURACIL [Concomitant]
     Route: 042
  4. FOLIC ACID [Concomitant]
     Route: 042
  5. OXALIPLATIN [Concomitant]
     Route: 042
  6. LOTENSIN [Concomitant]
     Route: 065

REACTIONS (1)
  - DEEP VEIN THROMBOSIS [None]
